FAERS Safety Report 6449653-7 (Version None)
Quarter: 2009Q4

REPORT INFORMATION
  Report Type: 
  Country: None (occurrence: None)
  Receive Date: 20091120
  Receipt Date: 20091109
  Transmission Date: 20100525
  Serious: Yes (Other)
  Sender: FDA-Public Use
  Company Number: PHHY2009JP47251

PATIENT
  Age: 54 Year
  Sex: Male

DRUGS (6)
  1. DIOVAN [Suspect]
     Indication: PRINZMETAL ANGINA
     Dosage: UNK
     Route: 048
  2. ISOSORBIDE DINITRATE [Concomitant]
     Indication: PRINZMETAL ANGINA
     Route: 048
  3. NICORANDIL [Concomitant]
     Indication: PRINZMETAL ANGINA
     Route: 048
  4. ASPIRIN [Concomitant]
     Indication: PRINZMETAL ANGINA
     Route: 048
  5. TICLOPIDINE HYDROCHLORIDE [Concomitant]
     Indication: PRINZMETAL ANGINA
     Route: 048
  6. DILTIAZEM HYDROCHLORIDE [Concomitant]
     Indication: PRINZMETAL ANGINA
     Route: 048

REACTIONS (3)
  - CHEST PAIN [None]
  - DRUG ERUPTION [None]
  - ELECTROCARDIOGRAM ABNORMAL [None]
